FAERS Safety Report 8804611 (Version 1)
Quarter: 2012Q4

REPORT INFORMATION
  Report Type: 
  Country: IT (occurrence: IT)
  Receive Date: 20120924
  Receipt Date: 20120924
  Transmission Date: 20130627
  Serious: Yes (Hospitalization)
  Sender: FDA-Public Use
  Company Number: IT-ABBOTT-12P-083-0985400-00

PATIENT
  Age: 24 Year
  Sex: Female

DRUGS (6)
  1. DEPAKINE CHRONO [Suspect]
     Indication: DEPRESSION
     Dosage: 250 mg daily
     Route: 048
  2. DEPAKINE CHRONO [Suspect]
     Route: 048
     Dates: start: 20120904, end: 20120904
  3. SERTRALINE [Suspect]
     Indication: DEPRESSION
     Route: 048
  4. SERTRALINE [Suspect]
     Route: 048
     Dates: start: 20120904, end: 20120904
  5. XANAX [Suspect]
     Indication: DEPRESSION
     Route: 048
  6. XANAX [Suspect]
     Route: 048
     Dates: start: 20120904, end: 20120904

REACTIONS (3)
  - Drug abuse [Unknown]
  - Self injurious behaviour [Unknown]
  - Drug abuse [Unknown]
